FAERS Safety Report 6367041-9 (Version None)
Quarter: 2009Q3

REPORT INFORMATION
  Report Type: 
  Country: None (occurrence: None)
  Receive Date: 20090921
  Receipt Date: 20090302
  Transmission Date: 20100115
  Serious: No
  Sender: FDA-Public Use
  Company Number: US-BAYER-200915059NA

PATIENT
  Age: 38 Year
  Sex: Female
  Weight: 75 kg

DRUGS (2)
  1. MIRENA [Suspect]
     Indication: CONTRACEPTION
     Route: 015
     Dates: start: 20040101, end: 20081001
  2. MIRENA [Suspect]
     Route: 015
     Dates: start: 20081009

REACTIONS (2)
  - AMENORRHOEA [None]
  - METRORRHAGIA [None]
